FAERS Safety Report 12831451 (Version 2)
Quarter: 2016Q4

REPORT INFORMATION
  Report Type: Report from Study
  Country: None (occurrence: RO)
  Receive Date: 20161008
  Receipt Date: 20161008
  Transmission Date: 20170207
  Serious: Yes (Hospitalization)
  Sender: FDA-Public Use
  Company Number: RO-ABBVIE-16P-135-1747248-00

PATIENT
  Age: 67 Year
  Sex: Male

DRUGS (1)
  1. DUODOPA [Suspect]
     Active Substance: CARBIDOPA\LEVODOPA
     Indication: PARKINSON^S DISEASE
     Dosage: 24/24 H, MD-5ML, CR-4,8 ML, ED-3 ML
     Route: 050
     Dates: start: 20150123

REACTIONS (6)
  - Weight decreased [Recovering/Resolving]
  - Constipation [Recovering/Resolving]
  - Tuberculosis [Unknown]
  - Pallor [Unknown]
  - Pulmonary mass [Unknown]
  - Bezoar [Recovering/Resolving]

NARRATIVE: CASE EVENT DATE: 201608
